FAERS Safety Report 21298070 (Version 2)
Quarter: 2022Q3

REPORT INFORMATION
  Report Type: Spontaneous
  Country: US (occurrence: US)
  Receive Date: 20220906
  Receipt Date: 20220914
  Transmission Date: 20221026
  Serious: Yes (Other)
  Sender: FDA-Public Use
  Company Number: US-PFIZER INC-202201108650

PATIENT
  Age: 66 Year
  Sex: Female
  Weight: 65.77 kg

DRUGS (1)
  1. PAXLOVID [Suspect]
     Active Substance: NIRMATRELVIR\RITONAVIR
     Indication: COVID-19 treatment
     Dosage: [PF-07321332 300 MG]/[RITONAVIR 100 MG]; 2X/DAY
     Route: 048
     Dates: start: 20220805, end: 20220810

REACTIONS (9)
  - Diarrhoea haemorrhagic [Recovering/Resolving]
  - Lip swelling [Recovering/Resolving]
  - Gait disturbance [Recovering/Resolving]
  - Pyrexia [Unknown]
  - Oxygen saturation decreased [Unknown]
  - COVID-19 [Recovered/Resolved]
  - Disease recurrence [Recovered/Resolved]
  - Sinusitis [Unknown]
  - Sinus headache [Unknown]

NARRATIVE: CASE EVENT DATE: 20220807
